FAERS Safety Report 21497612 (Version 1)
Quarter: 2022Q4

REPORT INFORMATION
  Report Type: Report from Study
  Country: US (occurrence: US)
  Receive Date: 20221024
  Receipt Date: 20221024
  Transmission Date: 20230112
  Serious: Yes (Disabling, Other)
  Sender: FDA-Public Use
  Company Number: US-BRISTOL-MYERS SQUIBB COMPANY-2022-121895

PATIENT
  Age: 37 Year
  Sex: Female
  Weight: 63.50 kg

DRUGS (1)
  1. POMALYST [Suspect]
     Active Substance: POMALIDOMIDE
     Indication: Plasma cell myeloma
     Dosage: 3 MG, ONCE A DAY FOR 21 DAYS FOLLOWED BY A WEEK OFF
     Route: 048
     Dates: start: 20201010

REACTIONS (1)
  - Disability [Unknown]

NARRATIVE: CASE EVENT DATE: 20210101
